FAERS Safety Report 24384522 (Version 1)
Quarter: 2024Q4

REPORT INFORMATION
  Report Type: Spontaneous
  Country: VN (occurrence: VN)
  Receive Date: 20241001
  Receipt Date: 20241001
  Transmission Date: 20250115
  Serious: Yes (Death, Other)
  Sender: NOVARTIS
  Company Number: VN-002147023-NVSC2024VN192408

PATIENT
  Sex: Male

DRUGS (2)
  1. CERITINIB [Suspect]
     Active Substance: CERITINIB
     Indication: Lung neoplasm malignant
     Dosage: 450 MG, QD
     Route: 065
     Dates: start: 20220612
  2. CERITINIB [Suspect]
     Active Substance: CERITINIB
     Dosage: 300 MG, QD
     Route: 065
     Dates: start: 20221020

REACTIONS (7)
  - Confusional state [Fatal]
  - Asthenia [Fatal]
  - Pneumonia [Recovering/Resolving]
  - Pyrexia [Unknown]
  - Somnolence [Unknown]
  - Hepatic enzyme increased [Unknown]
  - Therapeutic response decreased [Unknown]

NARRATIVE: CASE EVENT DATE: 20240101
